FAERS Safety Report 14079711 (Version 1)
Quarter: 2017Q4

REPORT INFORMATION
  Report Type: Spontaneous
  Country: US (occurrence: US)
  Receive Date: 20171012
  Receipt Date: 20171012
  Transmission Date: 20180321
  Serious: Yes (Other)
  Sender: FDA-Public Use
  Company Number: US-PFIZER INC-2017433164

PATIENT
  Sex: Male

DRUGS (1)
  1. CELEBREX [Suspect]
     Active Substance: CELECOXIB
     Indication: ARTHRITIS
     Dosage: UNK,(24 HR)

REACTIONS (4)
  - Apparent death [Unknown]
  - Oropharyngeal discomfort [Unknown]
  - Malaise [Unknown]
  - Abdominal discomfort [Unknown]
